FAERS Safety Report 4503203-0 (Version None)
Quarter: 2004Q4

REPORT INFORMATION
  Report Type: 
  Country: None (occurrence: None)
  Receive Date: 20041117
  Receipt Date: 20041018
  Transmission Date: 20050328
  Serious: Yes (Hospitalization)
  Sender: FDA-Public Use
  Company Number: US-MERCK-0410USA02718

PATIENT
  Age: 54 Year
  Sex: Female

DRUGS (6)
  1. VIOXX [Suspect]
     Indication: ARTHRITIS
     Route: 048
     Dates: start: 20030101, end: 20040930
  2. PREDNISONE [Concomitant]
     Route: 065
  3. VASOTEC [Concomitant]
     Route: 048
  4. ZOLOFT [Concomitant]
     Route: 065
  5. LIPITOR [Concomitant]
     Route: 065
  6. LOPRESSOR [Concomitant]
     Route: 065

REACTIONS (2)
  - LACUNAR INFARCTION [None]
  - NEUROPATHY [None]
